FAERS Safety Report 6418698-5 (Version None)
Quarter: 2009Q4

REPORT INFORMATION
  Report Type: 
  Country: None (occurrence: None)
  Receive Date: 20091026
  Receipt Date: 20091013
  Transmission Date: 20100525
  Serious: Yes (Other)
  Sender: FDA-Public Use
  Company Number: ADR38992009

PATIENT
  Age: 62 Year
  Sex: Male

DRUGS (3)
  1. SIMVASTATIN [Suspect]
     Indication: HYPERLIPIDAEMIA
     Dosage: 40 MG, ORAL
     Route: 048
     Dates: start: 20080128, end: 20080630
  2. ASPIRIN [Concomitant]
  3. LEVOTHYROXINE (125 ?G) [Concomitant]

REACTIONS (1)
  - ERECTILE DYSFUNCTION [None]
